FAERS Safety Report 10005426 (Version 1)
Quarter: 2014Q1

REPORT INFORMATION
  Report Type: Spontaneous
  Country: US (occurrence: US)
  Receive Date: 20140312
  Receipt Date: 20140312
  Transmission Date: 20141002
  Serious: Yes (Hospitalization, Other)
  Sender: FDA-Public Use
  Company Number: US-RB-064406-14

PATIENT
  Age: 28 Year
  Sex: Female

DRUGS (4)
  1. SUBOXONE FILM [Suspect]
     Indication: DRUG DEPENDENCE
     Dosage: SUBOXONE FILM; UNKNOWN DOSAGE DETAILS
     Route: 060
     Dates: end: 201311
  2. SUBOXONE FILM [Suspect]
     Dosage: SUBOXONE FILM; PRESCRIBED OVERDOSE REGIME
     Route: 060
     Dates: start: 201311
  3. SUBOXONE FILM [Suspect]
     Dosage: SUBOXONE FILM; UNKNOWN DOSAGE DETAILS
     Route: 060
     Dates: end: 201401
  4. ZUBSOLV [Suspect]
     Indication: DRUG DEPENDENCE
     Dosage: DOSING DETAILS UNKNOWN
     Route: 060
     Dates: start: 201401

REACTIONS (6)
  - Gallbladder disorder [Recovered/Resolved]
  - Hand fracture [Recovered/Resolved]
  - Pain [Recovered/Resolved]
  - Prescribed overdose [Recovered/Resolved]
  - Oral discomfort [Not Recovered/Not Resolved]
  - Leukoplakia oral [Not Recovered/Not Resolved]
